FAERS Safety Report 6183700-5 (Version None)
Quarter: 2009Q2

REPORT INFORMATION
  Report Type: 
  Country: None (occurrence: None)
  Receive Date: 20090508
  Receipt Date: 20090430
  Transmission Date: 20091009
  Serious: Yes (Congenital Anomaly)
  Sender: FDA-Public Use
  Company Number: GB-TEVA-193772ISR

PATIENT

DRUGS (2)
  1. METFORMIN HCL [Suspect]
     Indication: POLYCYSTIC OVARIES
     Route: 064
  2. METFORMIN HCL [Concomitant]

REACTIONS (1)
  - TRANSPOSITION OF THE GREAT VESSELS [None]
